FAERS Safety Report 14224028 (Version 1)
Quarter: 2017Q4

REPORT INFORMATION
  Report Type: Spontaneous
  Country: GB (occurrence: GB)
  Receive Date: 20171123
  Receipt Date: 20171123
  Transmission Date: 20180321
  Serious: Yes (Other)
  Sender: FDA-Public Use
  Company Number: None

PATIENT
  Age: 32 Year
  Sex: Female
  Weight: 47.6 kg

DRUGS (2)
  1. DIFFLAM SPRAY [Concomitant]
  2. CLARITHROMYCIN. [Suspect]
     Active Substance: CLARITHROMYCIN
     Indication: PHARYNGITIS
     Dosage: ?          QUANTITY:2 TABLET(S);?
     Route: 048
     Dates: start: 20171120

REACTIONS (5)
  - Emotional disorder [None]
  - Nervousness [None]
  - Insomnia [None]
  - Anxiety [None]
  - Paranoia [None]

NARRATIVE: CASE EVENT DATE: 20171122
